FAERS Safety Report 8868489 (Version 1)
Quarter: 2012Q4

REPORT INFORMATION
  Report Type: 
  Country: US (occurrence: US)
  Receive Date: 20121025
  Receipt Date: 20121025
  Transmission Date: 20130627
  Serious: No
  Sender: FDA-Public Use
  Company Number: US-AMGEN-USASP2012019864

PATIENT
  Age: 5 Year
  Sex: Female

DRUGS (3)
  1. ENBREL [Suspect]
     Indication: PRODUCT USED FOR UNKNOWN INDICATION
     Dosage: 50 mg, q2wk
     Route: 058
  2. MULTIPLE VITAMINS [Concomitant]
  3. TYLENOL /00020001/ [Concomitant]
     Dosage: 325 mg, UNK

REACTIONS (3)
  - Arthritis [Recovering/Resolving]
  - Ear pain [Recovering/Resolving]
  - Pharyngitis streptococcal [Recovering/Resolving]
